FAERS Safety Report 12060576 (Version 3)
Quarter: 2016Q1

REPORT INFORMATION
  Report Type: Spontaneous
  Country: US (occurrence: US)
  Receive Date: 20160210
  Receipt Date: 20160303
  Transmission Date: 20160526
  Serious: Yes (Other)
  Sender: FDA-Public Use
  Company Number: US-SA-2016SA021419

PATIENT
  Age: 59 Year
  Sex: Female

DRUGS (31)
  1. SOLOSTAR [Concomitant]
     Active Substance: DEVICE
     Indication: TYPE 2 DIABETES MELLITUS
  2. NORVASC [Concomitant]
     Active Substance: AMLODIPINE BESYLATE
     Dates: start: 20130610
  3. KETOROLAC TROMETHAMINE. [Concomitant]
     Active Substance: KETOROLAC TROMETHAMINE
     Dates: start: 20140407
  4. NOVOLOG [Concomitant]
     Active Substance: INSULIN ASPART
     Dates: start: 20131113
  5. PROMETHAZINE [Concomitant]
     Active Substance: PROMETHAZINE\PROMETHAZINE HYDROCHLORIDE
     Indication: COUGH
     Route: 048
     Dates: start: 20140509
  6. TRIAMCINOLONE [Concomitant]
     Active Substance: TRIAMCINOLONE
     Dates: start: 20130205
  7. VALIUM [Concomitant]
     Active Substance: DIAZEPAM
  8. NEURONTIN [Concomitant]
     Active Substance: GABAPENTIN
     Route: 048
     Dates: start: 20131010
  9. CEFADROXIL. [Concomitant]
     Active Substance: CEFADROXIL
     Route: 048
     Dates: start: 20140521
  10. RELAFEN [Concomitant]
     Active Substance: NABUMETONE
  11. VIGAMOX [Concomitant]
     Active Substance: MOXIFLOXACIN HYDROCHLORIDE
     Dates: start: 20140407
  12. LANTUS SOLOSTAR [Suspect]
     Active Substance: INSULIN GLARGINE
     Indication: TYPE 2 DIABETES MELLITUS
     Dosage: DOSE:60 UNIT(S)
     Route: 065
     Dates: start: 2010
  13. LANTUS SOLOSTAR [Concomitant]
     Active Substance: INSULIN GLARGINE
     Dosage: DOSE:60 UNIT(S)
     Dates: start: 20130923
  14. LIDOCAINE. [Concomitant]
     Active Substance: LIDOCAINE
     Dates: start: 20121204
  15. HYDROCHLOROTHIAZIDE/LISINOPRIL [Concomitant]
     Route: 048
     Dates: start: 20130610
  16. PREDNISOLONE. [Concomitant]
     Active Substance: PREDNISOLONE
     Dates: start: 20140407
  17. LANTUS SOLOSTAR [Suspect]
     Active Substance: INSULIN GLARGINE
     Indication: TYPE 2 DIABETES MELLITUS
     Dosage: DOSE:30 UNIT(S)
     Route: 065
  18. SOLOSTAR [Concomitant]
     Active Substance: DEVICE
     Indication: TYPE 2 DIABETES MELLITUS
     Dates: start: 2010
  19. NOVOLOG [Concomitant]
     Active Substance: INSULIN ASPART
  20. LANTUS SOLOSTAR [Concomitant]
     Active Substance: INSULIN GLARGINE
     Route: 058
     Dates: start: 20140522
  21. NABUMETONE. [Concomitant]
     Active Substance: NABUMETONE
     Route: 048
  22. NOVOLOG [Concomitant]
     Active Substance: INSULIN ASPART
     Dosage: DOSE:30 UNIT(S)
     Route: 058
     Dates: start: 20140522
  23. PERCOCET [Concomitant]
     Active Substance: ACETAMINOPHEN\OXYCODONE HYDROCHLORIDE
     Indication: PAIN
     Route: 048
  24. PIOGLITAZONE. [Concomitant]
     Active Substance: PIOGLITAZONE
     Route: 048
     Dates: start: 20130610
  25. ZOCOR [Concomitant]
     Active Substance: SIMVASTATIN
     Dates: start: 20130610
  26. AZELASTINE [Concomitant]
     Active Substance: AZELASTINE
     Dates: start: 20131024
  27. METFORMIN HYDROCHLORIDE. [Concomitant]
     Active Substance: METFORMIN HYDROCHLORIDE
     Route: 048
     Dates: start: 20130610
  28. NOVOLOG [Concomitant]
     Active Substance: INSULIN ASPART
     Route: 058
     Dates: start: 20140403
  29. OYSCO [Concomitant]
     Route: 048
     Dates: start: 20140204
  30. ZOCOR [Concomitant]
     Active Substance: SIMVASTATIN
     Dates: start: 20140512
  31. VITAMIN D3 [Concomitant]
     Active Substance: CHOLECALCIFEROL
     Route: 048
     Dates: start: 20140324

REACTIONS (5)
  - Off label use [Unknown]
  - Cataract operation [Unknown]
  - Upper limb fracture [Unknown]
  - Blood glucose increased [Unknown]
  - Incorrect product storage [Unknown]

NARRATIVE: CASE EVENT DATE: 2014
